FAERS Safety Report 20311275 (Version 1)
Quarter: 2022Q1

REPORT INFORMATION
  Report Type: Spontaneous
  Country: CA (occurrence: CA)
  Receive Date: 20220107
  Receipt Date: 20220107
  Transmission Date: 20220424
  Serious: Yes (Death)
  Sender: FDA-Public Use
  Company Number: CA-NAPPMUNDI-GBR-2022-0094131

PATIENT
  Age: 17 Year
  Sex: Male

DRUGS (1)
  1. MORPHINE SULFATE [Suspect]
     Active Substance: MORPHINE SULFATE
     Indication: Procedural pain
     Dosage: 5 MG, UNK
     Route: 065

REACTIONS (7)
  - Drug monitoring procedure incorrectly performed [Fatal]
  - Bradycardia [Fatal]
  - Brain death [Fatal]
  - Brain hypoxia [Fatal]
  - Cardio-respiratory arrest [Fatal]
  - Condition aggravated [Fatal]
  - Seizure [Fatal]
